FAERS Safety Report 5504811-0 (Version None)
Quarter: 2007Q4

REPORT INFORMATION
  Report Type: 
  Country: None (occurrence: None)
  Receive Date: 20071031
  Receipt Date: 20071031
  Transmission Date: 20080405
  Serious: Yes (Other)
  Sender: FDA-Public Use
  Company Number: None

PATIENT
  Age: 65 Year
  Sex: Female
  Weight: 108.8633 kg

DRUGS (1)
  1. LOVAZA [Suspect]
     Indication: HYPERLIPIDAEMIA
     Dosage: TWO CAP  BID  PO
     Route: 048
     Dates: start: 20070702, end: 20071029

REACTIONS (2)
  - BLOOD CHOLESTEROL INCREASED [None]
  - BLOOD TRIGLYCERIDES INCREASED [None]
